FAERS Safety Report 25578253 (Version 3)
Quarter: 2025Q3

REPORT INFORMATION
  Report Type: Spontaneous
  Country: US (occurrence: US)
  Receive Date: 20250718
  Receipt Date: 20250927
  Transmission Date: 20251021
  Serious: Yes (Other)
  Sender: SANOFI AVENTIS
  Company Number: US-SA-2025SA204787

PATIENT
  Age: 42 Year
  Sex: Female

DRUGS (6)
  1. DUPIXENT [Suspect]
     Active Substance: DUPILUMAB
     Indication: Asthma
     Dosage: 200 MG, QOW
     Route: 058
     Dates: start: 202407, end: 202412
  2. DUPIXENT [Suspect]
     Active Substance: DUPILUMAB
     Dates: start: 202501
  3. ALBUTEROL [Concomitant]
     Active Substance: ALBUTEROL
     Indication: Asthma
     Route: 055
     Dates: start: 2023
  4. TRELEGY ELLIPTA [Concomitant]
     Active Substance: FLUTICASONE FUROATE\UMECLIDINIUM BROMIDE\VILANTEROL TRIFENATATE
     Indication: Asthma
     Dosage: UNK UNK, QD
     Route: 055
     Dates: start: 2023
  5. MONTELUKAST [Concomitant]
     Active Substance: MONTELUKAST
     Indication: Asthma
     Route: 048
     Dates: start: 2023
  6. ZEPBOUND [Concomitant]
     Active Substance: TIRZEPATIDE
     Indication: Weight decreased
     Dates: start: 2024

REACTIONS (1)
  - Leiomyosarcoma [Unknown]

NARRATIVE: CASE EVENT DATE: 20241110
